FAERS Safety Report 18563606 (Version 1)
Quarter: 2020Q4

REPORT INFORMATION
  Report Type: Spontaneous
  Country: IT (occurrence: IT)
  Receive Date: 20201201
  Receipt Date: 20201201
  Transmission Date: 20210114
  Serious: Yes (Other)
  Sender: FDA-Public Use
  Company Number: NVSC2020IT313878

PATIENT
  Age: 64 Year
  Sex: Male

DRUGS (12)
  1. OXALIPLATIN. [Suspect]
     Active Substance: OXALIPLATIN
     Dosage: 6 CYCLES
     Route: 065
  2. IRINOTECAN [Suspect]
     Active Substance: IRINOTECAN
     Dosage: 20 CYCLES
     Route: 065
  3. OXALIPLATIN. [Suspect]
     Active Substance: OXALIPLATIN
     Indication: PANCREATIC CARCINOMA METASTATIC
     Dosage: 85 MG/M2, 4 CYCLES
     Route: 065
  4. IRINOTECAN [Suspect]
     Active Substance: IRINOTECAN
     Dosage: 6 CYCLES
     Route: 065
  5. 5 FU [Suspect]
     Active Substance: FLUOROURACIL
     Indication: PANCREATIC CARCINOMA METASTATIC
     Dosage: 2400 MG/M2, Q2W (CONTINUOUS 44 HOURS, 4 CYCLES)
     Route: 041
  6. OXALIPLATIN. [Suspect]
     Active Substance: OXALIPLATIN
     Dosage: 20 CYCLES
     Route: 065
  7. 5 FU [Suspect]
     Active Substance: FLUOROURACIL
     Dosage: 20 CYCLES
     Route: 065
  8. FOLINIC ACID [Suspect]
     Active Substance: LEUCOVORIN
     Dosage: 6 CYCLES
     Route: 065
  9. 5 FU [Suspect]
     Active Substance: FLUOROURACIL
     Dosage: 6 CYCLES
     Route: 065
  10. FOLINIC ACID [Suspect]
     Active Substance: LEUCOVORIN
     Indication: PANCREATIC CARCINOMA METASTATIC
     Dosage: 400 MG/M2, 4 CYCLES
     Route: 065
  11. IRINOTECAN [Suspect]
     Active Substance: IRINOTECAN
     Indication: PANCREATIC CARCINOMA METASTATIC
     Dosage: 180 MG/M2, 4 CYCLES
     Route: 065
  12. FOLINIC ACID [Suspect]
     Active Substance: LEUCOVORIN
     Dosage: 20 CYCLES
     Route: 065

REACTIONS (8)
  - Metastases to lung [Unknown]
  - Stomatitis [Unknown]
  - Product use in unapproved indication [Unknown]
  - Fatigue [Unknown]
  - Anaemia [Unknown]
  - Neutropenia [Unknown]
  - Metastases to liver [Unknown]
  - Diarrhoea [Unknown]
